FAERS Safety Report 9222083 (Version 1)
Quarter: 2013Q2

REPORT INFORMATION
  Report Type: Spontaneous
  Country: GB (occurrence: GB)
  Receive Date: 20130410
  Receipt Date: 20130410
  Transmission Date: 20140414
  Serious: Yes (Other)
  Sender: FDA-Public Use
  Company Number: PHFR2013GB002064

PATIENT
  Age: 76 Year
  Sex: Female
  Weight: 67 kg

DRUGS (4)
  1. ZOLEDRONATE [Suspect]
     Indication: OSTEITIS DEFORMANS
     Dosage: 4 MG
     Route: 042
     Dates: start: 20120919
  2. BENDROFLUMETHIAZIDE [Concomitant]
     Dosage: 2.5 MG
  3. CALCICHEW D3 [Concomitant]
     Dosage: 2 DF, QD
  4. COLECALCIFEROL [Concomitant]
     Dosage: 20000 IU, QMO

REACTIONS (5)
  - Aphasia [Recovered/Resolved]
  - Confusional state [Recovered/Resolved]
  - Tachycardia [Recovered/Resolved]
  - Pyrexia [Recovered/Resolved]
  - Incorrect dose administered [Unknown]
